FAERS Safety Report 9253109 (Version 4)
Quarter: 2014Q1

REPORT INFORMATION
  Report Type: Spontaneous
  Country: US (occurrence: US)
  Receive Date: 20130424
  Receipt Date: 20140127
  Transmission Date: 20141002
  Serious: No
  Sender: FDA-Public Use
  Company Number: US-PFIZER INC-2013125834

PATIENT
  Age: 44 Year
  Sex: Female

DRUGS (7)
  1. EFFEXOR XR [Suspect]
     Indication: MAJOR DEPRESSION
     Dosage: 225 MG, 1X/DAY EVERY MORNING
     Route: 048
     Dates: end: 20130502
  2. XYREM [Concomitant]
     Dosage: 225 MG, 2X/DAY
  3. SYNTHROID [Concomitant]
     Dosage: UNK
  4. BEYAZ [Concomitant]
     Dosage: UNK
  5. TESTOSTERONE [Concomitant]
     Dosage: UNK
  6. NEXIUM [Concomitant]
     Dosage: UNK
  7. CHLORAL HYDRATE [Concomitant]
     Dosage: UNK, PRN

REACTIONS (1)
  - Hypertension [Recovered/Resolved]
